FAERS Safety Report 18359523 (Version 1)
Quarter: 2020Q4

REPORT INFORMATION
  Report Type: Spontaneous
  Country: US (occurrence: US)
  Receive Date: 20201008
  Receipt Date: 20201008
  Transmission Date: 20210114
  Serious: Yes (Other)
  Sender: FDA-Public Use
  Company Number: US-HIKMA PHARMACEUTICALS USA INC.-US-H14001-20-04609

PATIENT
  Sex: Female

DRUGS (1)
  1. FLUTICASONE. [Suspect]
     Active Substance: FLUTICASONE
     Indication: PRODUCT USED FOR UNKNOWN INDICATION
     Dosage: TWICE
     Route: 045
     Dates: start: 202009, end: 202009

REACTIONS (2)
  - Pharyngeal haemorrhage [Unknown]
  - Nasal inflammation [Unknown]

NARRATIVE: CASE EVENT DATE: 202009
